FAERS Safety Report 12555018 (Version 1)
Quarter: 2016Q3

REPORT INFORMATION
  Report Type: Report from Study
  Country: ID (occurrence: ID)
  Receive Date: 20160714
  Receipt Date: 20160714
  Transmission Date: 20161109
  Serious: Yes (Other)
  Sender: FDA-Public Use
  Company Number: ID-ROCHE-1772763

PATIENT
  Sex: Female

DRUGS (1)
  1. AVASTIN [Suspect]
     Active Substance: BEVACIZUMAB
     Indication: OVARIAN CANCER
     Route: 065

REACTIONS (11)
  - Drug ineffective [Unknown]
  - General physical health deterioration [Unknown]
  - Dry throat [Unknown]
  - Pleural effusion [Unknown]
  - Pharyngitis [Not Recovered/Not Resolved]
  - Weight decreased [Unknown]
  - Chest discomfort [Not Recovered/Not Resolved]
  - Metastases to lung [Unknown]
  - Gastric pH decreased [Not Recovered/Not Resolved]
  - Aphonia [Not Recovered/Not Resolved]
  - Insomnia [Unknown]
